FAERS Safety Report 8268296-6 (Version None)
Quarter: 2012Q2

REPORT INFORMATION
  Report Type: 
  Country: None (occurrence: None)
  Receive Date: 20120409
  Receipt Date: 20120330
  Transmission Date: 20120825
  Serious: Yes (Other)
  Sender: FDA-Public Use
  Company Number: PHHY2012IT028218

PATIENT
  Sex: Female

DRUGS (3)
  1. HIZAAR [Concomitant]
  2. CARVIPRESS [Concomitant]
  3. AMOXICILLIN AND CLAVULANATE POTASSIUM [Suspect]
     Indication: TONSILLITIS
     Dosage: 2 DF, DAILY
     Route: 048
     Dates: start: 20120320, end: 20120323

REACTIONS (3)
  - ACUTE MYOCARDIAL INFARCTION [None]
  - ERYTHEMA [None]
  - PRURITUS [None]
